FAERS Safety Report 24089071 (Version 1)
Quarter: 2024Q3

REPORT INFORMATION
  Report Type: Spontaneous
  Country: TW (occurrence: TW)
  Receive Date: 20240715
  Receipt Date: 20240715
  Transmission Date: 20241016
  Serious: Yes (Death)
  Sender: ROCHE
  Company Number: TW-ROCHE-10000020313

PATIENT
  Age: 64 Year
  Sex: Male

DRUGS (2)
  1. ATEZOLIZUMAB [Suspect]
     Active Substance: ATEZOLIZUMAB
     Indication: Hepatocellular carcinoma
     Dosage: UNKNOWN DOSAGE AND FREQUENCY
     Route: 065
     Dates: start: 20240117
  2. BEVACIZUMAB [Suspect]
     Active Substance: BEVACIZUMAB
     Indication: Hepatocellular carcinoma
     Dosage: UNKNOWN DOSAGE AND FREQUENCY
     Route: 065
     Dates: start: 20240117

REACTIONS (5)
  - Abdominal pain [Fatal]
  - Kussmaul respiration [Fatal]
  - Haemorrhagic ascites [Fatal]
  - Tumour lysis syndrome [Fatal]
  - Dyspnoea [Fatal]

NARRATIVE: CASE EVENT DATE: 20240118
